FAERS Safety Report 17160443 (Version 1)
Quarter: 2019Q4

REPORT INFORMATION
  Report Type: Report from Study
  Country: US (occurrence: US)
  Receive Date: 20191216
  Receipt Date: 20191216
  Transmission Date: 20200122
  Serious: Yes (Death, Hospitalization, Other)
  Sender: FDA-Public Use
  Company Number: US-B.I. PHARMACEUTICALS,INC./RIDGEFIELD-2019-BI-024090

PATIENT
  Age: 76 Year
  Sex: Female

DRUGS (5)
  1. PROPRANOLOL [Concomitant]
     Active Substance: PROPRANOLOL HYDROCHLORIDE
     Indication: HYPERTENSION
     Route: 065
  2. ALPRAZOLAM. [Concomitant]
     Active Substance: ALPRAZOLAM
     Indication: ANXIETY
     Route: 065
  3. OFEV [Suspect]
     Active Substance: NINTEDANIB
     Indication: IDIOPATHIC PULMONARY FIBROSIS
     Route: 048
     Dates: start: 20190424
  4. OFEV [Suspect]
     Active Substance: NINTEDANIB
     Route: 048
  5. OMEPRAZOLE. [Concomitant]
     Active Substance: OMEPRAZOLE
     Indication: GASTROOESOPHAGEAL REFLUX DISEASE
     Route: 065

REACTIONS (17)
  - Respiratory failure [Recovered/Resolved]
  - Cough [Unknown]
  - Hip fracture [Unknown]
  - Sputum discoloured [Unknown]
  - Pneumonia [Recovered/Resolved]
  - Somnolence [Unknown]
  - Tachycardia [Unknown]
  - Fatigue [Unknown]
  - Retching [Unknown]
  - Insomnia [Unknown]
  - Idiopathic pulmonary fibrosis [Fatal]
  - Fatigue [Recovered/Resolved]
  - Pulmonary function test abnormal [Recovered/Resolved]
  - Flushing [Unknown]
  - Gastrooesophageal reflux disease [Unknown]
  - Cardiac failure [Fatal]
  - Heart rate increased [Unknown]

NARRATIVE: CASE EVENT DATE: 20190519
